FAERS Safety Report 10065543 (Version 1)
Quarter: 2014Q2

REPORT INFORMATION
  Report Type: Spontaneous
  Country: US (occurrence: None)
  Receive Date: 20140401
  Receipt Date: 20140401
  Transmission Date: 20141212
  Serious: Yes (Disabling)
  Sender: FDA-Public Use
  Company Number: PHEH2013US021654

PATIENT
  Age: 80 Year
  Sex: Female

DRUGS (4)
  1. EXELON PATCH [Suspect]
     Indication: DEMENTIA ALZHEIMER^S TYPE
     Route: 062
  2. FISH OIL (FISH OIL) [Concomitant]
  3. MULTIV-VIT (VITAMINS NOS) [Concomitant]
  4. VIT D (ERGOCALCIFEROL) [Concomitant]

REACTIONS (10)
  - Vomiting [None]
  - Abdominal discomfort [None]
  - Nausea [None]
  - Secretion discharge [None]
  - Pruritus [None]
  - Blister [None]
  - Abdominal pain [None]
  - Dizziness [None]
  - Rash [None]
  - Erythema [None]
